FAERS Safety Report 5914671-1 (Version None)
Quarter: 2008Q4

REPORT INFORMATION
  Report Type: 
  Country: None (occurrence: None)
  Receive Date: 20081008
  Receipt Date: 20080923
  Transmission Date: 20090506
  Serious: Yes (Other)
  Sender: FDA-Public Use
  Company Number: 2008BI024160

PATIENT
  Age: 59 Year
  Sex: Female

DRUGS (9)
  1. TYSABRI [Suspect]
     Indication: MULTIPLE SCLEROSIS
     Dosage: 300 MG;QM;IV
     Route: 042
     Dates: start: 20080515
  2. KEPPRA [Concomitant]
  3. ZONEGRAN [Concomitant]
  4. TOPAMAX [Concomitant]
  5. LISINOPRIL [Concomitant]
  6. CITALOPRAM HYDROBROMIDE [Concomitant]
  7. HUMALOG [Concomitant]
  8. ASPIRIN [Concomitant]
  9. PREV MEDS [Concomitant]

REACTIONS (6)
  - BREAST PAIN [None]
  - COGNITIVE DISORDER [None]
  - EYE DISORDER [None]
  - HYPOTONIA [None]
  - PARTIAL SEIZURES [None]
  - RED BLOOD CELL SEDIMENTATION RATE INCREASED [None]
